FAERS Safety Report 12910825 (Version 3)
Quarter: 2020Q2

REPORT INFORMATION
  Report Type: Spontaneous
  Country: US (occurrence: US)
  Receive Date: 20161104
  Receipt Date: 20200528
  Transmission Date: 20200713
  Serious: Yes (Hospitalization)
  Sender: FDA-Public Use
  Company Number: US-JNJFOC-20161010634

PATIENT
  Age: 52 Year
  Sex: Female

DRUGS (4)
  1. XARELTO [Suspect]
     Active Substance: RIVAROXABAN
     Route: 048
     Dates: start: 20160222, end: 201606
  2. MEDROXYPROGESTERONE ACETATE. [Suspect]
     Active Substance: MEDROXYPROGESTERONE ACETATE
     Indication: PRODUCT USED FOR UNKNOWN INDICATION
     Route: 065
  3. COUMADIN [Suspect]
     Active Substance: WARFARIN SODIUM
     Indication: PRODUCT USED FOR UNKNOWN INDICATION
     Route: 065
  4. XARELTO [Suspect]
     Active Substance: RIVAROXABAN
     Indication: PULMONARY EMBOLISM
     Route: 048
     Dates: start: 20140911, end: 20160209

REACTIONS (7)
  - Gastrointestinal haemorrhage [Recovering/Resolving]
  - Dysfunctional uterine bleeding [Unknown]
  - Off label use [Unknown]
  - Menometrorrhagia [Recovering/Resolving]
  - Product prescribing error [Unknown]
  - Menorrhagia [Recovering/Resolving]
  - Menorrhagia [Recovering/Resolving]

NARRATIVE: CASE EVENT DATE: 20150418
